FAERS Safety Report 5968632-7 (Version None)
Quarter: 2008Q4

REPORT INFORMATION
  Report Type: 
  Country: None (occurrence: None)
  Receive Date: 20081126
  Receipt Date: 20081117
  Transmission Date: 20090506
  Serious: Yes (Hospitalization)
  Sender: FDA-Public Use
  Company Number: IT-JNJCH-2008055443

PATIENT
  Age: 4 Year
  Sex: Male
  Weight: 13 kg

DRUGS (3)
  1. ASPIRIN [Suspect]
     Indication: STURGE-WEBER SYNDROME
     Dosage: TEXT:3 MG/KG DAILY
     Route: 065
  2. VALPROATE SODIUM [Suspect]
     Indication: STURGE-WEBER SYNDROME
     Dosage: TEXT:UNSPECIFIED
     Route: 065
  3. TOPIRAMATE [Suspect]
     Indication: STURGE-WEBER SYNDROME
     Dosage: TEXT:UNSPECIFIED
     Route: 065

REACTIONS (4)
  - ANAEMIA [None]
  - GENERAL PHYSICAL HEALTH DETERIORATION [None]
  - HAEMORRHAGE [None]
  - HEAD INJURY [None]
